FAERS Safety Report 7932829-7 (Version None)
Quarter: 2011Q4

REPORT INFORMATION
  Report Type: 
  Country: None (occurrence: None)
  Receive Date: 20111122
  Receipt Date: 20111116
  Transmission Date: 20120403
  Serious: Yes (Other)
  Sender: FDA-Public Use
  Company Number: BR-PFIZER INC-2011234037

PATIENT
  Age: 68 Year
  Sex: Female
  Weight: 52.5 kg

DRUGS (2)
  1. OMEPRAZOLE [Concomitant]
     Dosage: 1 TABLET DAILY, AS NEEDED
     Route: 048
  2. VARENICLINE TARTRATE [Suspect]
     Dosage: UNK
     Route: 048
     Dates: start: 20080801, end: 20080808

REACTIONS (2)
  - CARDIAC DISORDER [None]
  - HYPERSENSITIVITY [None]
